FAERS Safety Report 20544881 (Version 1)
Quarter: 2022Q1

REPORT INFORMATION
  Report Type: Report from Study
  Country: US (occurrence: US)
  Receive Date: 20220303
  Receipt Date: 20220303
  Transmission Date: 20220424
  Serious: Yes (Other)
  Sender: FDA-Public Use
  Company Number: US-TEVA-778820USA

PATIENT
  Age: 73 Year
  Sex: Female

DRUGS (2)
  1. AUSTEDO [Suspect]
     Active Substance: DEUTETRABENAZINE
     Indication: Huntington^s disease
     Dosage: ACHEIVED MAINTENANCE DOSE UP TO 12 MILLIGRAMS
     Route: 065
     Dates: start: 201706, end: 20170611
  2. AUSTEDO [Suspect]
     Active Substance: DEUTETRABENAZINE
     Dosage: 6 MILLIGRAM DAILY;
     Route: 065
     Dates: start: 20170601, end: 201706

REACTIONS (7)
  - Huntington^s disease [Recovered/Resolved]
  - Loss of personal independence in daily activities [Recovered/Resolved]
  - Mood altered [Recovering/Resolving]
  - Anger [Recovering/Resolving]
  - Crying [Recovering/Resolving]
  - Anxiety [Recovering/Resolving]
  - Drug ineffective [Unknown]

NARRATIVE: CASE EVENT DATE: 20170601
